FAERS Safety Report 13557714 (Version 2)
Quarter: 2017Q2

REPORT INFORMATION
  Report Type: Spontaneous
  Country: US (occurrence: US)
  Receive Date: 20170518
  Receipt Date: 20170626
  Transmission Date: 20170830
  Serious: Yes (Other)
  Sender: FDA-Public Use
  Company Number: US-PFIZER INC-2017210886

PATIENT
  Sex: Female

DRUGS (2)
  1. XELJANZ [Suspect]
     Active Substance: TOFACITINIB CITRATE
     Indication: RHEUMATOID ARTHRITIS
     Dosage: 5 MG, 2X/DAY
     Route: 048
     Dates: start: 2016
  2. METHOTREXATE SODIUM. [Suspect]
     Active Substance: METHOTREXATE SODIUM
     Indication: RHEUMATOID ARTHRITIS
     Dosage: 15 MG, WEEKLY [6 TABS/ WEEK = 15MG/ WEEK]
     Dates: start: 2015, end: 2017

REACTIONS (10)
  - Heart rate irregular [Unknown]
  - Weight increased [Unknown]
  - Constipation [Not Recovered/Not Resolved]
  - Synovitis [Unknown]
  - Abdominal pain [Not Recovered/Not Resolved]
  - Joint crepitation [Unknown]
  - Diarrhoea [Not Recovered/Not Resolved]
  - Mononeuritis [Not Recovered/Not Resolved]
  - Pleuropericarditis [Unknown]
  - Joint range of motion decreased [Unknown]
